FAERS Safety Report 7631570-8 (Version None)
Quarter: 2011Q3

REPORT INFORMATION
  Report Type: 
  Country: None (occurrence: None)
  Receive Date: 20110725
  Receipt Date: 20110719
  Transmission Date: 20111222
  Serious: Yes (Death)
  Sender: FDA-Public Use
  Company Number: US-ASTELLAS-2011US003216

PATIENT
  Sex: Male

DRUGS (1)
  1. ERLOTINIB HYDROCHLORIDE [Suspect]
     Indication: RENAL CANCER
     Dosage: 150 MG, UNKNOWN/D
     Route: 048
     Dates: start: 20110527

REACTIONS (2)
  - DEATH [None]
  - FATIGUE [None]
